FAERS Safety Report 10764385 (Version 3)
Quarter: 2015Q1

REPORT INFORMATION
  Report Type: Report from Study
  Country: RO (occurrence: RO)
  Receive Date: 20150205
  Receipt Date: 20150304
  Transmission Date: 20150721
  Serious: Yes (Other)
  Sender: FDA-Public Use
  Company Number: RO-ROCHE-1530828

PATIENT
  Age: 59 Year
  Sex: Female
  Weight: 70 kg

DRUGS (2)
  1. RITUXIMAB [Suspect]
     Active Substance: RITUXIMAB
     Indication: RHEUMATOID ARTHRITIS
     Route: 042
     Dates: start: 20110516, end: 20140307
  2. METHOTREXATE [Concomitant]
     Active Substance: METHOTREXATE
     Indication: RHEUMATOID ARTHRITIS
     Route: 058
     Dates: start: 20070101

REACTIONS (9)
  - Abdominal pain [Unknown]
  - Proteinuria [Recovering/Resolving]
  - Pulmonary fibrosis [Recovering/Resolving]
  - Red blood cell sedimentation rate increased [Recovering/Resolving]
  - Renal neoplasm [Recovering/Resolving]
  - Bone neoplasm [Recovering/Resolving]
  - Haematuria [Recovering/Resolving]
  - Hepatic cyst [Recovering/Resolving]
  - Emphysema [Recovering/Resolving]

NARRATIVE: CASE EVENT DATE: 20141215
